FAERS Safety Report 19866336 (Version 1)
Quarter: 2021Q3

REPORT INFORMATION
  Report Type: Spontaneous
  Country: CA (occurrence: CA)
  Receive Date: 20210922
  Receipt Date: 20210922
  Transmission Date: 20211014
  Serious: Yes (Other)
  Sender: FDA-Public Use
  Company Number: CA-JNJFOC-20210928929

PATIENT
  Sex: Female

DRUGS (4)
  1. MEPOLIZUMAB [Suspect]
     Active Substance: MEPOLIZUMAB
     Indication: EOSINOPHILIC GRANULOMATOSIS WITH POLYANGIITIS
     Route: 042
  2. PREDNISONE. [Suspect]
     Active Substance: PREDNISONE
     Route: 065
  3. TYLENOL [Suspect]
     Active Substance: ACETAMINOPHEN
     Indication: PRODUCT USED FOR UNKNOWN INDICATION
     Route: 065
  4. PREDNISONE. [Suspect]
     Active Substance: PREDNISONE
     Indication: PRODUCT USED FOR UNKNOWN INDICATION
     Route: 065

REACTIONS (20)
  - Eczema [Recovered/Resolved]
  - Eosinophilia [Recovered/Resolved]
  - Lymphocytic infiltration [Recovered/Resolved]
  - Joint swelling [Recovered/Resolved]
  - Pain [Recovered/Resolved]
  - Psoriasis [Recovered/Resolved]
  - Tendonitis [Recovered/Resolved]
  - Dermatitis [Recovered/Resolved]
  - Fatigue [Recovered/Resolved]
  - Granuloma skin [Recovered/Resolved]
  - Neuropathy peripheral [Recovered/Resolved]
  - Joint effusion [Recovered/Resolved]
  - Rash [Recovered/Resolved]
  - Cutaneous vasculitis [Recovered/Resolved]
  - Mononeuropathy multiplex [Recovered/Resolved]
  - Eosinophilic granulomatosis with polyangiitis [Recovered/Resolved]
  - Arthralgia [Recovered/Resolved]
  - Intestinal ischaemia [Recovered/Resolved]
  - Myositis [Recovered/Resolved]
  - Sinusitis [Recovered/Resolved]
